FAERS Safety Report 5661726-5 (Version None)
Quarter: 2008Q1

REPORT INFORMATION
  Report Type: 
  Country: None (occurrence: None)
  Receive Date: 20080312
  Receipt Date: 20080306
  Transmission Date: 20080703
  Serious: Yes (Hospitalization)
  Sender: FDA-Public Use
  Company Number: B0511158A

PATIENT
  Age: 82 Year
  Sex: Male
  Weight: 43 kg

DRUGS (6)
  1. ZOVIRAX [Suspect]
     Indication: HERPES ZOSTER
     Dosage: 400MG TWICE PER DAY
     Route: 048
     Dates: start: 20080201
  2. METILDIGOXIN [Concomitant]
     Route: 048
  3. CYANOCOBALAMIN [Concomitant]
     Route: 065
  4. ARASENA-A [Concomitant]
     Route: 065
  5. ENALAPRIL MALEATE [Concomitant]
     Route: 048
  6. FERROMIA [Concomitant]
     Route: 048

REACTIONS (5)
  - ABASIA [None]
  - ALTERED STATE OF CONSCIOUSNESS [None]
  - BRADYCARDIA [None]
  - DYSLALIA [None]
  - MALAISE [None]
